FAERS Safety Report 5396829-6 (Version None)
Quarter: 2007Q3

REPORT INFORMATION
  Report Type: 
  Country: None (occurrence: None)
  Receive Date: 20070725
  Receipt Date: 20060928
  Transmission Date: 20080115
  Serious: No
  Sender: FDA-Public Use
  Company Number: US-AMGEN-KDL195382

PATIENT
  Age: 76 Year
  Sex: Female

DRUGS (7)
  1. PROCRIT [Suspect]
     Indication: RENAL FAILURE CHRONIC
     Dates: start: 20060601
  2. PROTONIX [Concomitant]
  3. COREG [Concomitant]
  4. LASIX [Concomitant]
  5. SLEEPING MEDICATION NOS [Concomitant]
  6. NORVASC [Concomitant]
  7. ZOCOR [Concomitant]

REACTIONS (3)
  - ASTHENIA [None]
  - CONDITION AGGRAVATED [None]
  - OEDEMA PERIPHERAL [None]
